FAERS Safety Report 16996633 (Version 2)
Quarter: 2020Q2

REPORT INFORMATION
  Report Type: Report from Study
  Country: US (occurrence: US)
  Receive Date: 20191105
  Receipt Date: 20200401
  Transmission Date: 20200713
  Serious: Yes (Other)
  Sender: FDA-Public Use
  Company Number: US-SA-2019SA305348

PATIENT
  Age: 43 Year
  Sex: Female

DRUGS (1)
  1. TERIFLUNOMIDE. [Suspect]
     Active Substance: TERIFLUNOMIDE
     Indication: MULTIPLE SCLEROSIS
     Dosage: 14 MG, QD
     Route: 048
     Dates: start: 20190812

REACTIONS (14)
  - Neuropathy peripheral [Unknown]
  - Paraesthesia [Recovering/Resolving]
  - Anxiety [Unknown]
  - Pain [Recovering/Resolving]
  - Limb discomfort [Recovering/Resolving]
  - Sinusitis [Unknown]
  - Depression [Unknown]
  - Dizziness [Recovering/Resolving]
  - Condition aggravated [Recovering/Resolving]
  - Multiple sclerosis [Recovering/Resolving]
  - Stress [Unknown]
  - Pain in extremity [Not Recovered/Not Resolved]
  - Rhinorrhoea [Unknown]
  - Hypoaesthesia [Recovering/Resolving]

NARRATIVE: CASE EVENT DATE: 20191030
